FAERS Safety Report 8269974-5 (Version None)
Quarter: 2012Q2

REPORT INFORMATION
  Report Type: 
  Country: None (occurrence: None)
  Receive Date: 20120410
  Receipt Date: 20120330
  Transmission Date: 20120825
  Serious: No
  Sender: FDA-Public Use
  Company Number: AU-JNJFOC-20111002707

PATIENT
  Sex: Male
  Weight: 85 kg

DRUGS (10)
  1. OXYCONTIN [Concomitant]
     Indication: BONE PAIN
     Route: 065
     Dates: start: 20110701, end: 20111009
  2. ORDINE [Concomitant]
     Indication: BONE PAIN
     Route: 065
     Dates: start: 20110701, end: 20111003
  3. ZOLADEX [Concomitant]
     Indication: HORMONE THERAPY
     Dosage: 10.8 UNSPECIFIED UNITS
     Route: 065
     Dates: start: 20090921
  4. PREDNISOLONE [Suspect]
     Indication: PROSTATE CANCER METASTATIC
     Route: 065
     Dates: start: 20110923
  5. ORDINE [Concomitant]
     Indication: PELVIC PAIN
     Route: 065
     Dates: start: 20110701, end: 20111003
  6. LIDOCAINE [Concomitant]
     Indication: PENILE PAIN
     Route: 065
     Dates: start: 20111001, end: 20111001
  7. ABIRATERONE ACETATE [Suspect]
     Route: 048
  8. FUROSEMIDE [Suspect]
     Indication: OEDEMA PERIPHERAL
     Route: 065
     Dates: start: 20111001, end: 20111001
  9. ABIRATERONE ACETATE [Suspect]
     Indication: PROSTATE CANCER METASTATIC
     Route: 048
     Dates: start: 20110923, end: 20111020
  10. OXYCONTIN [Concomitant]
     Indication: PELVIC PAIN
     Route: 065
     Dates: start: 20110701, end: 20111009

REACTIONS (6)
  - ATRIAL FIBRILLATION [None]
  - HAEMATURIA [None]
  - ANAEMIA [None]
  - OEDEMA PERIPHERAL [None]
  - ELECTROLYTE IMBALANCE [None]
  - HYPOKALAEMIA [None]
